FAERS Safety Report 24173699 (Version 1)
Quarter: 2024Q3

REPORT INFORMATION
  Report Type: Report from Study
  Country: US (occurrence: None)
  Receive Date: 20240805
  Receipt Date: 20240805
  Transmission Date: 20241017
  Serious: Yes (Other)
  Sender: ASTRAZENECA
  Company Number: 2024A175569

PATIENT
  Sex: Female

DRUGS (1)
  1. CALQUENCE [Suspect]
     Active Substance: ACALABRUTINIB
     Indication: B-cell small lymphocytic lymphoma
     Route: 048
     Dates: start: 20220503

REACTIONS (5)
  - Post procedural complication [Unknown]
  - White blood cell count increased [Unknown]
  - Crying [Unknown]
  - Influenza [Unknown]
  - Clostridium difficile infection [Unknown]
